FAERS Safety Report 4274924-2 (Version None)
Quarter: 2004Q1

REPORT INFORMATION
  Report Type: 
  Country: None (occurrence: None)
  Receive Date: 20040120
  Receipt Date: 20031024
  Transmission Date: 20041129
  Serious: Yes (Hospitalization)
  Sender: FDA-Public Use
  Company Number: WAES 0310FRA00083

PATIENT
  Age: 61 Year
  Sex: Male

DRUGS (7)
  1. ASPIRIN LYSINE [Concomitant]
     Route: 048
  2. CEFTRIAXONE SODIUM [Suspect]
     Indication: PROSTATITIS
     Route: 042
     Dates: start: 20030907, end: 20030912
  3. DILTIAZEM HYDROCHLORIDE [Concomitant]
     Route: 048
  4. ISOSORBIDE DINITRATE [Concomitant]
     Route: 048
  5. METHYLPREDNISOLONE [Concomitant]
     Route: 048
  6. NOROXIN [Suspect]
     Indication: PROSTATITIS
     Route: 048
     Dates: start: 20030904, end: 20030906
  7. POTASSIUM CHLORIDE [Concomitant]
     Route: 048

REACTIONS (4)
  - EPISTAXIS [None]
  - PATHOGEN RESISTANCE [None]
  - RESPIRATORY FAILURE [None]
  - THROMBOCYTOPENIA [None]
